FAERS Safety Report 13724994 (Version 2)
Quarter: 2017Q3

REPORT INFORMATION
  Report Type: Spontaneous
  Country: US (occurrence: US)
  Receive Date: 20170706
  Receipt Date: 20170727
  Transmission Date: 20171127
  Serious: Yes (Hospitalization)
  Sender: FDA-Public Use
  Company Number: US-JNJFOC-20170611563

PATIENT
  Age: 69 Year
  Sex: Female

DRUGS (9)
  1. FAMOTIDINE. [Concomitant]
     Active Substance: FAMOTIDINE
     Route: 042
     Dates: start: 20170516, end: 20170516
  2. ZOFRAN [Concomitant]
     Active Substance: ONDANSETRON HYDROCHLORIDE
     Route: 042
     Dates: start: 20170516, end: 20170516
  3. ALLOPURINOL. [Suspect]
     Active Substance: ALLOPURINOL
     Indication: PRODUCT USED FOR UNKNOWN INDICATION
     Route: 065
     Dates: start: 20170209
  4. DEXAMETHASONE. [Concomitant]
     Active Substance: DEXAMETHASONE
     Route: 042
     Dates: start: 20170516, end: 20170516
  5. XARELTO [Suspect]
     Active Substance: RIVAROXABAN
     Indication: THROMBOPHLEBITIS SUPERFICIAL
     Route: 065
     Dates: end: 2017
  6. DIPHENHYDRAMINE. [Concomitant]
     Active Substance: DIPHENHYDRAMINE
     Route: 042
     Dates: start: 20170516, end: 20170516
  7. XARELTO [Suspect]
     Active Substance: RIVAROXABAN
     Indication: THROMBOPHLEBITIS SUPERFICIAL
     Route: 065
  8. IMBRUVICA [Suspect]
     Active Substance: IBRUTINIB
     Indication: CHRONIC LYMPHOCYTIC LEUKAEMIA
     Route: 048
     Dates: start: 20170207, end: 20170606
  9. IMBRUVICA [Suspect]
     Active Substance: IBRUTINIB
     Indication: CHRONIC LYMPHOCYTIC LEUKAEMIA
     Route: 048
     Dates: start: 20170208

REACTIONS (17)
  - Blood calcium decreased [Unknown]
  - Red blood cell count decreased [Unknown]
  - Asthenia [Recovering/Resolving]
  - Product use issue [Unknown]
  - Myalgia [Unknown]
  - Fatigue [Unknown]
  - Pancreatitis acute [Unknown]
  - Blood urea decreased [Unknown]
  - Decreased appetite [Not Recovered/Not Resolved]
  - Blood glucose increased [Unknown]
  - White blood cell count increased [Unknown]
  - Constipation [Unknown]
  - Haemoglobin decreased [Unknown]
  - Off label use [Unknown]
  - Blood potassium decreased [Unknown]
  - Haematocrit decreased [Unknown]
  - Nasopharyngitis [Not Recovered/Not Resolved]

NARRATIVE: CASE EVENT DATE: 20170127
